FAERS Safety Report 8000955-2 (Version None)
Quarter: 2011Q4

REPORT INFORMATION
  Report Type: 
  Country: None (occurrence: None)
  Receive Date: 20111219
  Receipt Date: 20111205
  Transmission Date: 20120403
  Serious: Yes (Death, Hospitalization, Other)
  Sender: FDA-Public Use
  Company Number: 2011MA017225

PATIENT
  Sex: Male

DRUGS (19)
  1. ATACAND [Concomitant]
  2. COREG [Concomitant]
  3. AMLODIPINE [Concomitant]
  4. NORVASC [Concomitant]
  5. ASPIRIN [Concomitant]
  6. DIGOXIN [Suspect]
     Indication: PRODUCT USED FOR UNKNOWN INDICATION
     Dosage: 0.25 MG;QD;PO
     Route: 048
     Dates: start: 20070213, end: 20080412
  7. LASIX [Concomitant]
  8. ZOCOR [Concomitant]
  9. CLARITIN [Concomitant]
  10. VITAMIN K TAB [Concomitant]
  11. GLIPIZIDE [Concomitant]
  12. BUMETANIDE [Concomitant]
  13. POTASSIUM CHLORIDE [Concomitant]
  14. DOBUTAMINE HCL [Concomitant]
  15. COUMADIN [Concomitant]
  16. PLAVIX [Concomitant]
  17. LEVOTHYROXINE SODIUM [Concomitant]
  18. CARDIZEM [Concomitant]
  19. NATRECOR [Concomitant]

REACTIONS (37)
  - INSOMNIA [None]
  - DIALYSIS [None]
  - BLOOD THYROID STIMULATING HORMONE INCREASED [None]
  - BODY TEMPERATURE DECREASED [None]
  - CARDIAC FAILURE CONGESTIVE [None]
  - RENAL FAILURE ACUTE [None]
  - ARTERIOSCLEROSIS CORONARY ARTERY [None]
  - AORTIC ARTERIOSCLEROSIS [None]
  - TOXICITY TO VARIOUS AGENTS [None]
  - TYPE 2 DIABETES MELLITUS [None]
  - BLOOD PH DECREASED [None]
  - HYPOTHYROIDISM [None]
  - DEMENTIA [None]
  - HYPERKALAEMIA [None]
  - SCROTAL OEDEMA [None]
  - BUNDLE BRANCH BLOCK RIGHT [None]
  - CONGESTIVE CARDIOMYOPATHY [None]
  - AORTIC STENOSIS [None]
  - PULMONARY VALVE INCOMPETENCE [None]
  - HAEMOGLOBIN DECREASED [None]
  - ISCHAEMIC CARDIOMYOPATHY [None]
  - RENAL CYST [None]
  - MITRAL VALVE CALCIFICATION [None]
  - AORTIC VALVE INCOMPETENCE [None]
  - TRICUSPID VALVE INCOMPETENCE [None]
  - PULMONARY CONGESTION [None]
  - PLEURAL EFFUSION [None]
  - PENILE OEDEMA [None]
  - SUDDEN CARDIAC DEATH [None]
  - PETECHIAE [None]
  - PLATELET COUNT DECREASED [None]
  - HYPERTENSION [None]
  - MITRAL VALVE INCOMPETENCE [None]
  - PULMONARY HYPERTENSION [None]
  - MEMORY IMPAIRMENT [None]
  - INTERNATIONAL NORMALISED RATIO INCREASED [None]
  - PULMONARY OEDEMA [None]
